FAERS Safety Report 4396703-8 (Version None)
Quarter: 2004Q3

REPORT INFORMATION
  Report Type: 
  Country: None (occurrence: None)
  Receive Date: 20040709
  Receipt Date: 20040625
  Transmission Date: 20050211
  Serious: Yes (Hospitalization)
  Sender: FDA-Public Use
  Company Number: 2004EU001296

PATIENT
  Age: 56 Year
  Sex: Female

DRUGS (4)
  1. PROGRAF [Suspect]
     Indication: RENAL TRANSPLANT
     Dosage: 8.00 MG/D, ORAL
     Route: 048
  2. CELLCEPT [Concomitant]
  3. PREDNISOLONE [Concomitant]
  4. CEFTAZIDIME SODIUM [Concomitant]

REACTIONS (2)
  - COMPLICATIONS OF TRANSPLANTED KIDNEY [None]
  - NEPHROCALCINOSIS [None]
